FAERS Safety Report 5286895-0 (Version None)
Quarter: 2007Q1

REPORT INFORMATION
  Report Type: 
  Country: None (occurrence: None)
  Receive Date: 20070329
  Receipt Date: 20070321
  Transmission Date: 20070707
  Serious: Yes (Other)
  Sender: FDA-Public Use
  Company Number: CIP07000038

PATIENT
  Age: 36 Year
  Sex: Female
  Weight: 49.9 kg

DRUGS (1)
  1. ACTONEL [Suspect]
     Indication: OSTEOPENIA
     Dosage: 35 MG ONCE WEEKLY, ORAL
     Route: 048
     Dates: end: 20060707

REACTIONS (8)
  - ABORTION INDUCED [None]
  - ANTEPARTUM HAEMORRHAGE [None]
  - CONGENITAL ANOMALY [None]
  - CONGENITAL NEUROLOGICAL DISORDER [None]
  - CRANIAL NERVE DISORDER [None]
  - DRUG EXPOSURE BEFORE PREGNANCY [None]
  - FOETAL DISORDER [None]
  - VENTRICULAR HYPERTROPHY [None]
